FAERS Safety Report 10070996 (Version 3)
Quarter: 2014Q3

REPORT INFORMATION
  Report Type: Report from Study
  Country: US (occurrence: US)
  Receive Date: 20140410
  Receipt Date: 20140707
  Transmission Date: 20150326
  Serious: Yes (Hospitalization, Other)
  Sender: FDA-Public Use
  Company Number: US-BRISTOL-MYERS SQUIBB COMPANY-20598314

PATIENT
  Age: 60 Year
  Sex: Female
  Weight: 92.51 kg

DRUGS (2)
  1. METFORMIN [Concomitant]
     Active Substance: METFORMIN HYDROCHLORIDE
     Dosage: 2TABS
     Route: 048
  2. BYETTA [Suspect]
     Active Substance: EXENATIDE
     Indication: TYPE 2 DIABETES MELLITUS
     Dosage: ABOUT FIVE TO SIX YEARS AGO,?250MCG/2.4ML PEN.

REACTIONS (4)
  - Weight decreased [Unknown]
  - Injection site haemorrhage [Recovered/Resolved]
  - Osteoarthritis [Recovered/Resolved]
  - Product quality issue [Unknown]

NARRATIVE: CASE EVENT DATE: 20140614
